FAERS Safety Report 7969843-1 (Version None)
Quarter: 2011Q4

REPORT INFORMATION
  Report Type: 
  Country: None (occurrence: None)
  Receive Date: 20111122
  Receipt Date: 20110824
  Transmission Date: 20120403
  Serious: No
  Sender: FDA-Public Use
  Company Number: PHEH2011US02618

PATIENT
  Sex: Female
  Weight: 56.2 kg

DRUGS (1)
  1. GILENYA [Suspect]
     Dosage: 0.5 MG, QD, ORAL
     Route: 048

REACTIONS (5)
  - HYPOAESTHESIA [None]
  - PARAESTHESIA [None]
  - ANXIETY [None]
  - FATIGUE [None]
  - HEADACHE [None]
